FAERS Safety Report 25667903 (Version 2)
Quarter: 2025Q3

REPORT INFORMATION
  Report Type: Spontaneous
  Country: US (occurrence: US)
  Receive Date: 20250812
  Receipt Date: 20250827
  Transmission Date: 20251020
  Serious: Yes (Disabling)
  Sender: ALEXION PHARMACEUTICALS
  Company Number: US-AstraZeneca-CH-00928096A

PATIENT
  Age: 37 Year
  Sex: Male
  Weight: 81.646 kg

DRUGS (2)
  1. TEZSPIRE [Suspect]
     Active Substance: TEZEPELUMAB-EKKO
     Indication: Asthma
     Dosage: UNK, QMONTH
     Dates: start: 20250715
  2. TEZSPIRE [Suspect]
     Active Substance: TEZEPELUMAB-EKKO

REACTIONS (6)
  - Anosmia [Not Recovered/Not Resolved]
  - Nasal septum deviation [Unknown]
  - Nasal turbinate hypertrophy [Unknown]
  - Oedema mucosal [Unknown]
  - Nasal congestion [Unknown]
  - Secretion discharge [Unknown]

NARRATIVE: CASE EVENT DATE: 20250715
